FAERS Safety Report 6592378-8 (Version None)
Quarter: 2010Q1

REPORT INFORMATION
  Report Type: 
  Country: None (occurrence: None)
  Receive Date: 20100221
  Receipt Date: 20091118
  Transmission Date: 20100710
  Serious: No
  Sender: FDA-Public Use
  Company Number: US-ALLERGAN-0913871US

PATIENT
  Age: 65 Year
  Sex: Female
  Weight: 60.771 kg

DRUGS (7)
  1. BOTOX [Suspect]
     Indication: TORTICOLLIS
     Dosage: 200-250 UNITS, SINGLE
     Route: 030
     Dates: start: 20081126, end: 20081126
  2. BOTOX [Suspect]
     Dosage: UNK
     Route: 030
     Dates: start: 20090818, end: 20090818
  3. SYNTHROID [Concomitant]
     Indication: HYPOTHYROIDISM
     Dosage: 0.112 MG, QAM
     Dates: start: 19910101
  4. SYNTHROID [Concomitant]
     Dosage: 0.01 UNK, UNK
  5. SYNTHROID [Concomitant]
     Dosage: 0.125 UNK, UNK
  6. CLONAZEPAM [Concomitant]
     Indication: TORTICOLLIS
     Dosage: 0.5 MG, TID
  7. ZOCOR [Concomitant]
     Indication: BLOOD CHOLESTEROL INCREASED
     Dosage: 0.5 MG, QPM

REACTIONS (2)
  - NECK MASS [None]
  - URTICARIA [None]
